FAERS Safety Report 6219368-9 (Version None)
Quarter: 2009Q2

REPORT INFORMATION
  Report Type: 
  Country: None (occurrence: None)
  Receive Date: 20090605
  Receipt Date: 20090605
  Transmission Date: 20091009
  Serious: Yes (Life-Threatening, Hospitalization)
  Sender: FDA-Public Use
  Company Number: None

PATIENT
  Age: 30 Year
  Sex: Female
  Weight: 97.5234 kg

DRUGS (2)
  1. CIPRO [Suspect]
     Indication: PYELONEPHRITIS
     Dosage: 500MG THREE A DAY PO
     Route: 048
  2. IBUPROPHEN [Concomitant]

REACTIONS (3)
  - PALPITATIONS [None]
  - RASH GENERALISED [None]
  - SWELLING [None]
